FAERS Safety Report 25597586 (Version 1)
Quarter: 2025Q3

REPORT INFORMATION
  Report Type: Spontaneous
  Country: US (occurrence: US)
  Receive Date: 20250723
  Receipt Date: 20250723
  Transmission Date: 20251021
  Serious: Yes (Hospitalization, Other)
  Sender: SAMSUNG BIOEPIS
  Company Number: US-SAMSUNG BIOEPIS-SB-2025-24726

PATIENT
  Age: 66 Year
  Sex: Female

DRUGS (2)
  1. INFLIXIMAB [Suspect]
     Active Substance: INFLIXIMAB
     Indication: Crohn^s disease
  2. PREDNISONE [Suspect]
     Active Substance: PREDNISONE
     Indication: Crohn^s disease

REACTIONS (6)
  - Pneumocystis jirovecii pneumonia [Recovering/Resolving]
  - Clostridium difficile colitis [Unknown]
  - Respiratory failure [Unknown]
  - Lung infiltration [Unknown]
  - Distributive shock [Unknown]
  - Hypovolaemic shock [Unknown]
